FAERS Safety Report 15260156 (Version 2)
Quarter: 2018Q3

REPORT INFORMATION
  Report Type: Report from Study
  Country: US (occurrence: US)
  Receive Date: 20180809
  Receipt Date: 20180824
  Transmission Date: 20181010
  Serious: Yes (Other)
  Sender: FDA-Public Use
  Company Number: US-PFIZER INC-2018079335

PATIENT
  Age: 69 Year
  Sex: Female

DRUGS (2)
  1. SUTENT [Suspect]
     Active Substance: SUNITINIB MALATE
     Indication: RENAL CELL CARCINOMA
     Dosage: 50 MG, DAILY
     Route: 048
     Dates: start: 20180217, end: 201803
  2. SUTENT [Suspect]
     Active Substance: SUNITINIB MALATE
     Dosage: 25 MG, CYCLIC (DAILY, 4 WEEKS ON AND 2 WEEKS OFF)
     Route: 048
     Dates: start: 20180409, end: 201808

REACTIONS (14)
  - Dysgeusia [Unknown]
  - Drug dose omission [Unknown]
  - Hypothyroidism [Unknown]
  - Blister [Recovering/Resolving]
  - Muscle spasms [Unknown]
  - Ageusia [Unknown]
  - Diarrhoea [Not Recovered/Not Resolved]
  - Fatigue [Not Recovered/Not Resolved]
  - Decreased appetite [Unknown]
  - Alopecia [Unknown]
  - Hair colour changes [Unknown]
  - Paraesthesia oral [Unknown]
  - Stomatitis [Unknown]
  - Gout [Unknown]

NARRATIVE: CASE EVENT DATE: 2018
